FAERS Safety Report 18634241 (Version 1)
Quarter: 2020Q4

REPORT INFORMATION
  Report Type: Spontaneous
  Country: US (occurrence: US)
  Receive Date: 20201218
  Receipt Date: 20201218
  Transmission Date: 20210114
  Serious: No
  Sender: FDA-Public Use
  Company Number: US-REGENERON PHARMACEUTICALS, INC.-2020-22868

PATIENT

DRUGS (3)
  1. EYLEA [Suspect]
     Active Substance: AFLIBERCEPT
     Indication: EYE SWELLING
  2. INSULIN [Concomitant]
     Active Substance: INSULIN NOS
     Indication: PRODUCT USED FOR UNKNOWN INDICATION
  3. EYLEA [Suspect]
     Active Substance: AFLIBERCEPT
     Indication: NERVE INJURY
     Dosage: EVERY MONTH IN BOTH EYES
     Route: 031
     Dates: start: 20200228, end: 20200228

REACTIONS (3)
  - Off label use [Unknown]
  - Visual impairment [Unknown]
  - Vision blurred [Unknown]
